FAERS Safety Report 13708926 (Version 1)
Quarter: 2017Q2

REPORT INFORMATION
  Report Type: Report from Study
  Country: US (occurrence: US)
  Receive Date: 20170630
  Receipt Date: 20170630
  Transmission Date: 20170830
  Serious: No
  Sender: FDA-Public Use
  Company Number: US-IPSEN BIOPHARMACEUTICALS, INC.-2016-02595

PATIENT
  Age: 40 Year
  Sex: Female
  Weight: 72.57 kg

DRUGS (1)
  1. SOMATULINE [Suspect]
     Active Substance: LANREOTIDE ACETATE
     Indication: ACROMEGALY
     Dosage: NOT REPORTED
     Route: 058
     Dates: start: 20160319

REACTIONS (1)
  - Delayed sleep phase [Recovered/Resolved]

NARRATIVE: CASE EVENT DATE: 20160319
